FAERS Safety Report 22913659 (Version 4)
Quarter: 2024Q3

REPORT INFORMATION
  Report Type: Spontaneous
  Country: US (occurrence: US)
  Receive Date: 20230906
  Receipt Date: 20240904
  Transmission Date: 20241016
  Serious: No
  Sender: SUNOVION
  Company Number: US-MYOVANT SCIENCES GMBH-2023MYSCI0500479

PATIENT

DRUGS (20)
  1. ORGOVYX [Suspect]
     Active Substance: RELUGOLIX
     Indication: Prostate cancer
     Dosage: 360 MILLIGRAM, ONE TIME DOSE
     Route: 065
     Dates: start: 202201, end: 202201
  2. ORGOVYX [Suspect]
     Active Substance: RELUGOLIX
     Dosage: 120 MILLIGRAM, QD
     Route: 048
     Dates: start: 202201, end: 20231204
  3. SILODOSIN [Suspect]
     Active Substance: SILODOSIN
     Indication: Micturition disorder
     Dosage: 8 MG, QD
     Route: 048
  4. LISINOPRIL [Suspect]
     Active Substance: LISINOPRIL
     Indication: Hypertension
     Dosage: 10 MILLIGRAM, QD
     Route: 048
  5. LISINOPRIL [Suspect]
     Active Substance: LISINOPRIL
     Dosage: 5 MILLIGRAM, QD
     Route: 048
  6. FLOMAX [Suspect]
     Active Substance: TAMSULOSIN HYDROCHLORIDE
     Indication: Micturition disorder
     Dosage: UNK
     Route: 065
  7. FLOMAX [Suspect]
     Active Substance: TAMSULOSIN HYDROCHLORIDE
     Indication: Hypertension
  8. DESVENLAFAXINE [Suspect]
     Active Substance: DESVENLAFAXINE
     Indication: Anxiety
     Dosage: 75 MILLIGRAM, QD
     Route: 048
  9. DESVENLAFAXINE [Suspect]
     Active Substance: DESVENLAFAXINE
     Indication: Thinking abnormal
     Dosage: 50 MG, QD
     Route: 048
  10. DESVENLAFAXINE [Suspect]
     Active Substance: DESVENLAFAXINE
     Indication: Obsessive-compulsive disorder
  11. CLOZAPINE [Suspect]
     Active Substance: CLOZAPINE
     Indication: Thinking abnormal
     Route: 065
  12. CLOZAPINE [Suspect]
     Active Substance: CLOZAPINE
     Indication: Anxiety
  13. CLOZAPINE [Suspect]
     Active Substance: CLOZAPINE
     Indication: Obsessive-compulsive disorder
  14. ATORVASTATIN [Concomitant]
     Active Substance: ATORVASTATIN
     Indication: Blood cholesterol abnormal
     Dosage: 20 MILLIGRAM, QD
     Route: 048
  15. FELODIPINE [Concomitant]
     Active Substance: FELODIPINE
     Indication: Micturition disorder
     Dosage: UNK
     Route: 065
  16. KLONOPIN [Concomitant]
     Active Substance: CLONAZEPAM
     Indication: Anxiety
     Dosage: 0.5 MILLIGRAM, QID
     Route: 048
  17. VITAMIN B12 [Concomitant]
     Active Substance: CYANOCOBALAMIN
     Indication: Supplementation therapy
     Dosage: 25 MICROGRAM, QD
     Route: 048
  18. LATANOPROST [Concomitant]
     Active Substance: LATANOPROST
     Indication: Glaucoma
     Dosage: 1 DROP EACH EYE
     Route: 031
  19. IBUPROFEN [Concomitant]
     Active Substance: IBUPROFEN
     Indication: Prostate cancer
     Dosage: UNK, PRN
     Route: 048
  20. METOPROLOL [Concomitant]
     Active Substance: METOPROLOL
     Indication: Blood pressure abnormal
     Dosage: 25 MILLIGRAM, QD
     Route: 048
     Dates: start: 202309

REACTIONS (14)
  - Palpitations [Not Recovered/Not Resolved]
  - Nervousness [Unknown]
  - Dyspnoea [Unknown]
  - Prostatic specific antigen increased [Unknown]
  - Blood testosterone increased [Unknown]
  - Drug ineffective [Unknown]
  - Blood pressure decreased [Unknown]
  - Alopecia [Not Recovered/Not Resolved]
  - Bone density decreased [Unknown]
  - Fatigue [Not Recovered/Not Resolved]
  - Weight increased [Not Recovered/Not Resolved]
  - Asthenia [Not Recovered/Not Resolved]
  - Hot flush [Not Recovered/Not Resolved]
  - Hyperhidrosis [Unknown]

NARRATIVE: CASE EVENT DATE: 20220601
